FAERS Safety Report 14759988 (Version 1)
Quarter: 2018Q2

REPORT INFORMATION
  Report Type: Spontaneous
  Country: FR (occurrence: FR)
  Receive Date: 20180413
  Receipt Date: 20180413
  Transmission Date: 20180711
  Serious: Yes (Other)
  Sender: FDA-Public Use
  Company Number: FR-ALLERGAN-1820639US

PATIENT
  Age: 66 Year
  Sex: Male

DRUGS (1)
  1. SILODOSIN - BP [Suspect]
     Active Substance: SILODOSIN
     Indication: URINARY TRACT DISORDER
     Dosage: 1 DF, QD
     Route: 048
     Dates: start: 20171127, end: 20171130

REACTIONS (2)
  - Insomnia [Recovered/Resolved]
  - Sleep disorder [Recovered/Resolved]

NARRATIVE: CASE EVENT DATE: 20171127
